FAERS Safety Report 4360202-X (Version None)
Quarter: 2004Q2

REPORT INFORMATION
  Report Type: 
  Country: None (occurrence: None)
  Receive Date: 20040518
  Receipt Date: 20040518
  Transmission Date: 20050107
  Serious: Yes (Hospitalization)
  Sender: FDA-Public Use
  Company Number: None

PATIENT
  Age: 45 Year
  Sex: Female
  Weight: 64.4108 kg

DRUGS (5)
  1. NEXIUM [Suspect]
     Indication: GASTROOESOPHAGEAL REFLUX DISEASE
     Dosage: 40 MG BID ORAL
     Route: 048
     Dates: start: 20040405, end: 20040504
  2. NEXIUM [Suspect]
     Indication: PROPHYLAXIS
     Dosage: 40 MG BID ORAL
     Route: 048
     Dates: start: 20040405, end: 20040504
  3. SINGULAIR [Concomitant]
  4. ADVAIR DISKUS 100/50 [Concomitant]
  5. PROVENTIL [Concomitant]

REACTIONS (1)
  - NAUSEA [None]
